FAERS Safety Report 5405903-7 (Version None)
Quarter: 2007Q3

REPORT INFORMATION
  Report Type: 
  Country: None (occurrence: None)
  Receive Date: 20070806
  Receipt Date: 20070725
  Transmission Date: 20080115
  Serious: Yes (Hospitalization)
  Sender: FDA-Public Use
  Company Number: CH-AVENTIS-200713752EU

PATIENT
  Age: 76 Year
  Sex: Female

DRUGS (2)
  1. FLUDEX                             /00340101/ [Suspect]
     Indication: ESSENTIAL HYPERTENSION
     Route: 048
     Dates: end: 20070501
  2. CARBAMAZEPINE [Suspect]

REACTIONS (4)
  - BLOOD OSMOLARITY DECREASED [None]
  - HYPONATRAEMIA [None]
  - INAPPROPRIATE ANTIDIURETIC HORMONE SECRETION [None]
  - URINE OSMOLARITY INCREASED [None]
